FAERS Safety Report 25790873 (Version 1)
Quarter: 2025Q3

REPORT INFORMATION
  Report Type: Spontaneous
  Country: US (occurrence: None)
  Receive Date: 20250911
  Receipt Date: 20250911
  Transmission Date: 20251021
  Serious: Yes (Death)
  Sender: FDA-CTU
  Company Number: None

PATIENT
  Age: 47 Year
  Sex: Male

DRUGS (11)
  1. TACROLIMUS [Suspect]
     Active Substance: TACROLIMUS
     Indication: Heart transplant
     Dosage: FREQUENCY : DAILY;?
     Route: 048
  2. TACROLIMUS [Concomitant]
     Active Substance: TACROLIMUS
  3. ASPIRIN [Concomitant]
     Active Substance: ASPIRIN
  4. FERROUS SULFATE [Concomitant]
     Active Substance: FERROUS SULFATE
  5. FISH OIL [Concomitant]
     Active Substance: FISH OIL
  6. GABAPENTIN [Concomitant]
     Active Substance: GABAPENTIN
  7. SOAANZ [Concomitant]
     Active Substance: TORSEMIDE
  8. LACOSAMIDE [Concomitant]
     Active Substance: LACOSAMIDE
  9. METOPROLOL [Concomitant]
     Active Substance: METOPROLOL
  10. LEVETIRACETAM [Concomitant]
     Active Substance: LEVETIRACETAM
  11. ELIQUIS [Concomitant]
     Active Substance: APIXABAN

REACTIONS (1)
  - Death [None]

NARRATIVE: CASE EVENT DATE: 20250906
